FAERS Safety Report 9214483 (Version 7)
Quarter: 2016Q2

REPORT INFORMATION
  Report Type: Report from Study
  Country: BR (occurrence: BR)
  Receive Date: 20130405
  Receipt Date: 20160412
  Transmission Date: 20160815
  Serious: Yes (Hospitalization)
  Sender: FDA-Public Use
  Company Number: BR-ROCHE-1210043

PATIENT
  Sex: Female
  Weight: 58 kg

DRUGS (21)
  1. MOTILIUM [Concomitant]
     Active Substance: DOMPERIDONE
     Indication: GASTRIC DISORDER
  2. CHOLECALCIFEROL [Concomitant]
     Active Substance: CHOLECALCIFEROL
     Dosage: DAILY
     Route: 065
  3. METICORTEN [Concomitant]
     Active Substance: PREDNISONE
     Dosage: DAILY
     Route: 065
  4. FUROSEMIDE. [Concomitant]
     Active Substance: FUROSEMIDE
     Dosage: DAILY
     Route: 065
  5. MABTHERA [Suspect]
     Active Substance: RITUXIMAB
     Indication: RHEUMATOID ARTHRITIS
     Dosage: LAST INFUSION ON 15/MAY/2013 (D15)
     Route: 042
     Dates: start: 20100901, end: 20141111
  6. PANTOPRAZOLE [Concomitant]
     Active Substance: PANTOPRAZOLE SODIUM
     Route: 065
  7. DIACEREIN [Concomitant]
     Active Substance: DIACEREIN
     Indication: ARTHROPATHY
     Route: 065
  8. DIGESAN [Concomitant]
     Active Substance: BROMOPRIDE
     Dosage: DAILY
     Route: 065
  9. XARELTO [Concomitant]
     Active Substance: RIVAROXABAN
     Dosage: DAILY
     Route: 065
  10. CORTISONE [Concomitant]
     Active Substance: CORTISONE\HYDROCORTISONE
     Indication: ARTHRITIS
     Route: 065
  11. DRAMAMINE [Concomitant]
     Active Substance: DIMENHYDRINATE
     Dosage: DAILY
     Route: 065
  12. PREDNISONE. [Concomitant]
     Active Substance: PREDNISONE
     Route: 065
  13. CHONDROITIN [Concomitant]
     Active Substance: CHONDROITIN
     Indication: ARTHROPATHY
     Route: 065
  14. TRAMAL [Concomitant]
     Active Substance: TRAMADOL
     Dosage: DAILY
     Route: 065
  15. LUFTAL [Concomitant]
     Active Substance: DIMETHICONE
  16. PROTOS (BRAZIL) [Concomitant]
     Active Substance: STRONTIUM RANELATE
  17. URSACOL [Concomitant]
     Active Substance: URSODIOL
     Route: 065
  18. LUFTAL (BRAZIL) [Concomitant]
  19. TYLENOL [Concomitant]
     Active Substance: ACETAMINOPHEN
     Route: 065
  20. NOVALGIN [Concomitant]
     Active Substance: METAMIZOLE SODIUM
     Dosage: DAILY
     Route: 065
  21. PARACETAMOL [Concomitant]
     Active Substance: ACETAMINOPHEN
     Dosage: DAILY
     Route: 065

REACTIONS (9)
  - Wound dehiscence [Unknown]
  - Dysphagia [Recovering/Resolving]
  - Pulmonary embolism [Recovering/Resolving]
  - Pneumonia [Recovering/Resolving]
  - Sepsis [Recovering/Resolving]
  - Urinary tract infection [Unknown]
  - Nausea [Unknown]
  - Erysipelas [Recovered/Resolved]
  - Abdominal hernia [Unknown]
